FAERS Safety Report 18524093 (Version 1)
Quarter: 2020Q4

REPORT INFORMATION
  Report Type: Spontaneous
  Country: DE (occurrence: DE)
  Receive Date: 20201119
  Receipt Date: 20201119
  Transmission Date: 20210114
  Serious: Yes (Other)
  Sender: FDA-Public Use
  Company Number: DE-PFIZER INC-2011056899

PATIENT

DRUGS (1)
  1. METHOTREXATE SODIUM. [Suspect]
     Active Substance: METHOTREXATE SODIUM
     Dosage: UNK

REACTIONS (4)
  - Skin erosion [Recovered/Resolved]
  - Cutaneous vasculitis [Recovered/Resolved]
  - Varicella zoster virus infection [Recovered/Resolved]
  - Rash vesicular [Recovered/Resolved]
